FAERS Safety Report 6834581-5 (Version None)
Quarter: 2010Q3

REPORT INFORMATION
  Report Type: 
  Country: None (occurrence: None)
  Receive Date: 20100712
  Receipt Date: 20070417
  Transmission Date: 20110219
  Serious: No
  Sender: FDA-Public Use
  Company Number: US-PFIZER INC-2007030863

PATIENT
  Sex: Female

DRUGS (1)
  1. CHANTIX [Suspect]
     Dates: start: 20070401

REACTIONS (2)
  - NAUSEA [None]
  - SINUSITIS [None]
